FAERS Safety Report 9248874 (Version 1)
Quarter: 2013Q1

REPORT INFORMATION
  Report Type: Spontaneous
  Country: US (occurrence: None)
  Receive Date: 20130305
  Receipt Date: 20130305
  Transmission Date: 20140127
  Serious: Yes (Hospitalization)
  Sender: FDA-Public Use
  Company Number: 163-21880-12091775

PATIENT
  Age: 75 Year
  Sex: Male
  Weight: 71.17 kg

DRUGS (14)
  1. REVLIMID [Suspect]
     Indication: PLASMA CELL MYELOMA
     Dosage: 5 MG. TUES, THURS, AND SAT. FOR 3 WEEKS
     Route: 048
     Dates: start: 20120822
  2. REVLIMID [Suspect]
     Indication: CHRONIC LYMPHOCYTIC LEUKAEMIA
     Dosage: 5 MG. TUES, THURS, AND SAT. FOR 3 WEEKS
     Route: 048
     Dates: start: 20120822
  3. BENAZEPRIL (BENAZEPRIL) (UNKNOWN) [Concomitant]
  4. DIGOXIN (DIGOXIN) (UNKNOWN) (DIGOXIN) [Concomitant]
  5. CALCIUM ACETATE (CALCIUM ACETATE) UNKNOWN [Concomitant]
  6. LASIX (FUROSEMIDE) (UNKNOWN) [Concomitant]
  7. ZAROXOLYN (METOLAZONE) (UNKNOWN) [Concomitant]
  8. OMEPRAZOLE (OMEPRAZOLE) (UNKNOWN) [Concomitant]
  9. COREG (CARVEDILOL) (UNKNOWN) [Concomitant]
  10. BENADRYL (DIPHENHYDRAMINE HYDROCHLORIDE) (UNKNOWN) [Concomitant]
  11. ZOFRAN (ONDANSETRON HYDROCHLORIDE) (UNKNOWN) [Concomitant]
  12. ZANTAC (RANITIDINE HYDROCHLORIDE) (UNKNOWN) [Concomitant]
  13. ATARAX (HYDROXINE HYDROCHLORIDE) [Concomitant]
  14. COUMADIN (WARFARIN SODIUM) (UNKNOWN) [Concomitant]

REACTIONS (4)
  - Pyrexia [None]
  - Pain [None]
  - Paraesthesia [None]
  - Hypoaesthesia [None]
